FAERS Safety Report 8585563-7 (Version None)
Quarter: 2012Q3

REPORT INFORMATION
  Report Type: 
  Country: None (occurrence: None)
  Receive Date: 20120810
  Receipt Date: 20120805
  Transmission Date: 20120928
  Serious: Yes (Death, Hospitalization, Other)
  Sender: FDA-Public Use
  Company Number: JP-AMGEN-JPNCT2011052881

PATIENT
  Age: 75 Year
  Sex: Male
  Weight: 42 kg

DRUGS (17)
  1. PANITUMUMAB [Suspect]
     Dosage: 6 MG/KG, Q2WK
     Route: 041
     Dates: start: 20110824, end: 20110921
  2. OXALIPLATIN [Concomitant]
     Indication: COLORECTAL CANCER
     Dosage: 100 MG, Q2WK
     Route: 041
     Dates: start: 20101104, end: 20110824
  3. FLUOROURACIL [Concomitant]
     Dosage: 3250 MG, Q2WK
     Route: 041
     Dates: start: 20101104, end: 20110824
  4. DECADRON PHOSPHATE [Concomitant]
     Route: 042
     Dates: start: 20101104, end: 20110921
  5. LEUCOVORIN CALCIUM [Concomitant]
     Dosage: 275 MG, Q2WK
     Route: 041
     Dates: start: 20110907, end: 20111005
  6. PANITUMUMAB [Suspect]
     Dosage: 6 MG/KG, Q2WK
     Route: 041
     Dates: start: 20110224, end: 20110224
  7. PANITUMUMAB [Suspect]
     Indication: COLORECTAL CANCER
     Dosage: 6 MG/KG, Q2WK
     Route: 041
     Dates: start: 20101104, end: 20110127
  8. FLUOROURACIL [Concomitant]
     Indication: COLORECTAL CANCER
     Dosage: 500 MG, Q2WK
     Route: 040
     Dates: start: 20101104, end: 20110824
  9. KYTRIL [Concomitant]
     Dosage: UNK
     Route: 042
     Dates: start: 20101104, end: 20110921
  10. PANITUMUMAB [Suspect]
     Dosage: 6 MG/KG, Q2WK
     Route: 041
     Dates: start: 20110323, end: 20110323
  11. PANITUMUMAB [Suspect]
     Dosage: 6 MG/KG, Q2WK
     Route: 041
     Dates: start: 20110518, end: 20110518
  12. PANITUMUMAB [Suspect]
     Dosage: 6 MG/KG, Q2WK
     Route: 041
     Dates: start: 20110615, end: 20110615
  13. FLUOROURACIL [Concomitant]
     Route: 041
     Dates: start: 20110907, end: 20111005
  14. LEUCOVORIN CALCIUM [Concomitant]
     Indication: COLORECTAL CANCER
     Dosage: 275 MG, Q2WK
     Route: 041
     Dates: start: 20101104, end: 20110824
  15. PANITUMUMAB [Suspect]
     Dosage: 6 MG/KG, Q2WK
     Route: 041
     Dates: start: 20110420, end: 20110420
  16. FLUOROURACIL [Concomitant]
     Route: 040
     Dates: start: 20110907, end: 20111005
  17. IRINOTECAN HYDROCHLORIDE [Concomitant]
     Indication: COLORECTAL CANCER
     Dosage: 200 MG, Q2WK
     Route: 041
     Dates: start: 20110907, end: 20111005

REACTIONS (4)
  - RASH [None]
  - STOMATITIS [None]
  - INTERSTITIAL LUNG DISEASE [None]
  - COLORECTAL CANCER [None]
